FAERS Safety Report 5485543-4 (Version None)
Quarter: 2007Q4

REPORT INFORMATION
  Report Type: 
  Country: None (occurrence: None)
  Receive Date: 20071011
  Receipt Date: 20070928
  Transmission Date: 20080405
  Serious: Yes (Other)
  Sender: FDA-Public Use
  Company Number: B0489963A

PATIENT
  Age: 37 Year
  Sex: Female

DRUGS (4)
  1. LAMOTRIGINE [Suspect]
     Indication: BIPOLAR I DISORDER
     Dosage: SEE DOSAGE TEXT
  2. SEMISODIUM VALPROATE (FORMULATION UNKNOWN) (DIVALPROEX SODIUM) [Suspect]
     Indication: BIPOLAR I DISORDER
     Dosage: SEE DOSAGE TEXT
  3. ZOPICLONE [Concomitant]
  4. OLANZAPINE [Concomitant]

REACTIONS (8)
  - BLOOD DISORDER [None]
  - DRUG INTERACTION [None]
  - LEUKOPENIA [None]
  - MENSTRUAL DISORDER [None]
  - MYALGIA [None]
  - NEUTROPENIA [None]
  - RASH ERYTHEMATOUS [None]
  - VISION BLURRED [None]
